FAERS Safety Report 6716040-3 (Version None)
Quarter: 2010Q2

REPORT INFORMATION
  Report Type: 
  Country: None (occurrence: None)
  Receive Date: 20100507
  Receipt Date: 20100504
  Transmission Date: 20101027
  Serious: Yes (Death)
  Sender: FDA-Public Use
  Company Number: A0797177A

PATIENT
  Age: 43 Year
  Sex: Male

DRUGS (5)
  1. PROMACTA [Suspect]
     Indication: THROMBOCYTOPENIA
     Dosage: 25MG PER DAY
     Route: 048
     Dates: start: 20090128, end: 20090406
  2. PEGASYS [Suspect]
  3. RIBAVIRIN [Suspect]
  4. LASIX [Concomitant]
     Dates: start: 20070801
  5. ALDACTONE [Concomitant]
     Dates: start: 20070801

REACTIONS (7)
  - ABDOMINAL PAIN [None]
  - DIARRHOEA [None]
  - DRUG INEFFECTIVE [None]
  - EPISTAXIS [None]
  - HEPATIC NEOPLASM MALIGNANT [None]
  - NAUSEA [None]
  - PLATELET COUNT DECREASED [None]
